FAERS Safety Report 14199214 (Version 1)
Quarter: 2017Q4

REPORT INFORMATION
  Report Type: Spontaneous
  Country: BR (occurrence: BR)
  Receive Date: 20171117
  Receipt Date: 20171117
  Transmission Date: 20180321
  Serious: Yes (Other)
  Sender: FDA-Public Use
  Company Number: BR-009507513-1711BRA004718

PATIENT
  Age: 25 Year
  Sex: Female
  Weight: 72 kg

DRUGS (1)
  1. NUVARING [Suspect]
     Active Substance: ETHINYL ESTRADIOL\ETONOGESTREL
     Indication: CONTRACEPTION
     Dosage: 1 VAGINAL RING, 3 WEEKS
     Route: 067
     Dates: start: 201709

REACTIONS (8)
  - Vulvovaginal burning sensation [Not Recovered/Not Resolved]
  - Vulvovaginal injury [Not Recovered/Not Resolved]
  - Bacterial infection [Recovered/Resolved]
  - Incorrect drug administration duration [Unknown]
  - Vulvovaginal discomfort [Not Recovered/Not Resolved]
  - Vaginal discharge [Recovered/Resolved]
  - Drug prescribing error [Unknown]
  - Device breakage [Recovered/Resolved]

NARRATIVE: CASE EVENT DATE: 2017
